FAERS Safety Report 9630958 (Version 2)
Quarter: 2013Q4

REPORT INFORMATION
  Report Type: Spontaneous
  Country: US (occurrence: None)
  Receive Date: 20131016
  Receipt Date: 20131108
  Transmission Date: 20140711
  Serious: Yes (Other)
  Sender: FDA-Public Use
  Company Number: CC400195196

PATIENT
  Age: 2 Month
  Sex: Male
  Weight: 4 kg

DRUGS (1)
  1. HEPARIN SODIUM IN 5 % DEXTROSE [Suspect]
     Indication: ANTICOAGULANT THERAPY
     Route: 042
     Dates: start: 20130927, end: 20130928

REACTIONS (2)
  - Drug ineffective [None]
  - Product quality issue [None]
